FAERS Safety Report 9911541 (Version 1)
Quarter: 2014Q1

REPORT INFORMATION
  Report Type: Spontaneous
  Country: US (occurrence: US)
  Receive Date: 20140219
  Receipt Date: 20140219
  Transmission Date: 20141002
  Serious: Yes (Hospitalization)
  Sender: FDA-Public Use
  Company Number: PHHY2014US017815

PATIENT
  Age: 66 Year
  Sex: Female

DRUGS (13)
  1. LITHIUM [Concomitant]
  2. VALPROIC ACID [Suspect]
     Indication: AGITATION
  3. HALOPERIDOL [Suspect]
     Indication: AGITATION
     Dosage: 15 MG, UNK
     Route: 042
  4. MIDAZOLAM [Suspect]
     Indication: AGITATION
  5. MORPHINE [Suspect]
     Indication: AGITATION
  6. ALPRAZOLAM [Suspect]
     Indication: AGITATION
  7. PROPOFOL [Suspect]
     Indication: AGITATION
     Route: 041
  8. BUPROPION [Suspect]
     Indication: AGITATION
  9. FLUOXETINE [Suspect]
     Indication: AGITATION
  10. QUETIAPINE [Suspect]
     Indication: AGITATION
     Dosage: 800 MG, UNK
  11. RISPERIDONE [Suspect]
     Dosage: 1 MG, EVERY 6HR
  12. OLANZAPINE [Suspect]
     Dosage: 5 MG, TID, 5 MG EVERY 6 HOURS AS NEEDED
  13. CORTICOSTEROIDS [Suspect]

REACTIONS (5)
  - Ammonia increased [Unknown]
  - Atrioventricular block [Unknown]
  - Electrocardiogram QT prolonged [Unknown]
  - Extrapyramidal disorder [Unknown]
  - Drug ineffective [Unknown]
